FAERS Safety Report 14138118 (Version 1)
Quarter: 2017Q4

REPORT INFORMATION
  Report Type: Spontaneous
  Country: US (occurrence: US)
  Receive Date: 20171027
  Receipt Date: 20171027
  Transmission Date: 20180321
  Serious: No
  Sender: FDA-Public Use
  Company Number: US-BAYER-2017-202759

PATIENT
  Age: 78 Year
  Sex: Female

DRUGS (15)
  1. SIMVASTATIN. [Concomitant]
     Active Substance: SIMVASTATIN
  2. OMEPRAZOLE. [Concomitant]
     Active Substance: OMEPRAZOLE
  3. PLAVIX [Concomitant]
     Active Substance: CLOPIDOGREL BISULFATE
  4. LOTEPREDNOL [Concomitant]
     Active Substance: LOTEPREDNOL
  5. PREDNISOLON [PREDNISOLONE] [Concomitant]
  6. MIRALAX [Suspect]
     Active Substance: POLYETHYLENE GLYCOL 3350
  7. METFORMINE [Concomitant]
     Active Substance: METFORMIN HYDROCHLORIDE
  8. MIRALAX [Suspect]
     Active Substance: POLYETHYLENE GLYCOL 3350
     Indication: COLONOSCOPY
     Route: 048
  9. BAYER ASPIRIN [Concomitant]
     Active Substance: ASPIRIN
  10. LISINOPRIL. [Concomitant]
     Active Substance: LISINOPRIL
  11. ASPIRIN BAYER [Concomitant]
     Active Substance: ASPIRIN
  12. GLIPIZIDE. [Concomitant]
     Active Substance: GLIPIZIDE
  13. SOTALOL. [Concomitant]
     Active Substance: SOTALOL
  14. LASIX [Concomitant]
     Active Substance: FUROSEMIDE
  15. POTASSIUM [Concomitant]
     Active Substance: POTASSIUM

REACTIONS (3)
  - Inappropriate prescribing [Unknown]
  - Product use in unapproved indication [Unknown]
  - Circumstance or information capable of leading to medication error [Unknown]

NARRATIVE: CASE EVENT DATE: 20171022
